FAERS Safety Report 5417739-1 (Version None)
Quarter: 2007Q3

REPORT INFORMATION
  Report Type: 
  Country: None (occurrence: None)
  Receive Date: 20070815
  Receipt Date: 20070815
  Transmission Date: 20080115
  Serious: Yes (Hospitalization)
  Sender: FDA-Public Use
  Company Number: None

PATIENT
  Sex: Female
  Weight: 62.5964 kg

DRUGS (13)
  1. LASIX [Suspect]
     Indication: HYPERTENSION
     Dosage: PO (THERAPY DATES: PRIOR TO ADMISSION)
     Route: 048
  2. LABETALOL HCL [Suspect]
     Indication: HYPERTENSION
     Dosage: PO  (THERAPY DATES: PRIOR TO ADMISSION)
     Route: 048
  3. MICARDIS [Suspect]
     Indication: HYPERTENSION
     Dosage: PO  (THERAPY DATES: PRIOR TO ADMISSION)
     Route: 048
  4. LOTREL [Suspect]
     Indication: HYPERTENSION
     Dosage: PO  (THERAPY DATES: PRIOR TO ADMISSION)
     Route: 048
  5. BUPROPION HCL [Concomitant]
  6. AMOXICILLIN [Concomitant]
  7. NASONEX [Concomitant]
  8. PROTONIX [Concomitant]
  9. PROZAC [Concomitant]
  10. XANAX [Concomitant]
  11. ADVAIR DISKUS 100/50 [Concomitant]
  12. FLUOXETINE [Concomitant]
  13. ALBUTEROL [Concomitant]

REACTIONS (3)
  - ASTHENIA [None]
  - DIZZINESS [None]
  - HYPOTENSION [None]
